FAERS Safety Report 21311806 (Version 1)
Quarter: 2022Q3

REPORT INFORMATION
  Report Type: Spontaneous
  Country: US (occurrence: None)
  Receive Date: 20220909
  Receipt Date: 20220909
  Transmission Date: 20221027
  Serious: No
  Sender: FDA-Public Use
  Company Number: US-ARIS GLOBAL-202203-0454

PATIENT
  Sex: Male

DRUGS (14)
  1. OXERVATE [Suspect]
     Active Substance: CENEGERMIN-BKBJ
     Indication: Neurotrophic keratopathy
     Route: 047
     Dates: start: 20220303
  2. DORZOLAMIDE [Concomitant]
     Active Substance: DORZOLAMIDE
  3. ASPIRIN [Concomitant]
     Active Substance: ASPIRIN
  4. LISINOPRIL [Concomitant]
     Active Substance: LISINOPRIL
  5. TAMSULOSIN [Concomitant]
     Active Substance: TAMSULOSIN
  6. COLCHICINE [Concomitant]
     Active Substance: COLCHICINE
  7. METOPROLOL SUCCINATE [Concomitant]
     Active Substance: METOPROLOL SUCCINATE
  8. VITAMIN C [Concomitant]
     Active Substance: ASCORBIC ACID
  9. GEMFIBROZIL [Concomitant]
     Active Substance: GEMFIBROZIL
  10. SIMVASTATIN [Concomitant]
     Active Substance: SIMVASTATIN
  11. COSOPT [Concomitant]
     Active Substance: DORZOLAMIDE HYDROCHLORIDE\TIMOLOL MALEATE
     Dosage: 22.3-6.8/1
  12. METFORMIN HYDROCHLORIDE [Concomitant]
     Active Substance: METFORMIN HYDROCHLORIDE
  13. TYLENOL EXTRA STRENGTH [Concomitant]
     Active Substance: ACETAMINOPHEN
  14. FISH OIL [Concomitant]
     Active Substance: FISH OIL
     Dosage: 100-150 MG

REACTIONS (4)
  - Ocular hyperaemia [Unknown]
  - Eye pain [Unknown]
  - Lacrimation increased [Unknown]
  - Ocular discomfort [Unknown]
